FAERS Safety Report 9473031 (Version 1)
Quarter: 2013Q3

REPORT INFORMATION
  Report Type: Spontaneous
  Country: US (occurrence: US)
  Receive Date: 20130823
  Receipt Date: 20130823
  Transmission Date: 20140515
  Serious: No
  Sender: FDA-Public Use
  Company Number: US-BRISTOL-MYERS SQUIBB COMPANY-17348517

PATIENT
  Age: 30 Year
  Sex: Female

DRUGS (4)
  1. SPRYCEL [Suspect]
     Indication: CHRONIC MYELOID LEUKAEMIA
     Route: 048
     Dates: start: 201209
  2. ADVAIR [Concomitant]
  3. FLONASE [Concomitant]
  4. ORTHO TRI-CYCLEN [Concomitant]

REACTIONS (3)
  - Headache [Unknown]
  - Periorbital oedema [Unknown]
  - Pain [Unknown]
